FAERS Safety Report 12960853 (Version 2)
Quarter: 2017Q4

REPORT INFORMATION
  Report Type: Spontaneous
  Country: US (occurrence: US)
  Receive Date: 20161121
  Receipt Date: 20171110
  Transmission Date: 20180320
  Serious: No
  Sender: FDA-Public Use
  Company Number: US-OTSUKA-2016_020194

PATIENT
  Age: 30 Year
  Sex: Male

DRUGS (8)
  1. VICKS NYQUIL [Concomitant]
     Active Substance: ACETAMINOPHEN\DEXTROMETHORPHAN HYDROBROMIDE\DOXYLAMINE SUCCINATE
     Indication: PRODUCT USED FOR UNKNOWN INDICATION
     Dosage: UNK
     Route: 065
  2. OXYCODONE [Concomitant]
     Active Substance: OXYCODONE
     Indication: BACK PAIN
     Dosage: UNK
     Route: 065
  3. PERPHENAZINE-AMITRIPTYLINE [Concomitant]
     Active Substance: AMITRIPTYLINE\PERPHENAZINE
     Indication: PRODUCT USED FOR UNKNOWN INDICATION
     Dosage: 4-25 MG, BID
     Route: 048
     Dates: start: 20160812
  4. NUEDEXTA [Suspect]
     Active Substance: DEXTROMETHORPHAN HYDROBROMIDE\QUINIDINE SULFATE
     Indication: AFFECT LABILITY
     Dosage: 1 DF, BID (1 CAPSULE EVERY 12 HOURS)
     Route: 048
     Dates: start: 20160811
  5. XANAX [Concomitant]
     Active Substance: ALPRAZOLAM
     Indication: ANXIETY
     Dosage: 1 MG, TID
     Route: 065
  6. NUEDEXTA [Suspect]
     Active Substance: DEXTROMETHORPHAN HYDROBROMIDE\QUINIDINE SULFATE
     Dosage: 1 DF, QD
  7. CITALOPRAM [Concomitant]
     Active Substance: CITALOPRAM HYDROBROMIDE
     Indication: PRODUCT USED FOR UNKNOWN INDICATION
     Dosage: 20 MG, QD
     Route: 048
  8. IBUPROFEN. [Concomitant]
     Active Substance: IBUPROFEN
     Indication: HEADACHE
     Dosage: 2-3 TIMES A WEEK
     Route: 065

REACTIONS (14)
  - Mood swings [Unknown]
  - Asthenia [Unknown]
  - Inability to afford medication [Unknown]
  - Anxiety [Not Recovered/Not Resolved]
  - Irritability [Unknown]
  - Dizziness [Recovered/Resolved]
  - Depressive symptom [Unknown]
  - Hyperhidrosis [Unknown]
  - Headache [Unknown]
  - Hypersomnia [Unknown]
  - Anger [Unknown]
  - Drug dose omission [Unknown]
  - Cognitive disorder [Unknown]
  - Somnolence [Recovered/Resolved]

NARRATIVE: CASE EVENT DATE: 201608
